FAERS Safety Report 5398791-9 (Version None)
Quarter: 2007Q3

REPORT INFORMATION
  Report Type: 
  Country: None (occurrence: None)
  Receive Date: 20070724
  Receipt Date: 20070711
  Transmission Date: 20080115
  Serious: Yes (Death)
  Sender: FDA-Public Use
  Company Number: 16999

PATIENT
  Age: 72 Year
  Sex: Male
  Weight: 50 kg

DRUGS (12)
  1. MITOZANTRONE [Suspect]
     Indication: PROSTATE CANCER METASTATIC
     Dates: start: 20070522, end: 20070523
  2. PREDNISOLONE [Suspect]
     Indication: PROSTATE CANCER
     Dates: start: 20070522, end: 20070523
  3. AMITRIPTYLINE HCL [Concomitant]
  4. AMLODIPINE [Concomitant]
  5. ASPIRIN [Concomitant]
  6. ATENOLOL [Concomitant]
  7. FUROSEMIDE [Concomitant]
  8. MS CONTIN [Concomitant]
  9. OMEPRAZOLE [Concomitant]
  10. RAMIPRIL [Concomitant]
  11. SIMVASTATIN [Concomitant]
  12. STILBOESTROL [Concomitant]

REACTIONS (3)
  - BONE MARROW FAILURE [None]
  - DRUG TOXICITY [None]
  - NEUTROPENIC COLITIS [None]
